FAERS Safety Report 24244877 (Version 3)
Quarter: 2025Q4

REPORT INFORMATION
  Report Type: Report from Study
  Country: CA (occurrence: CA)
  Receive Date: 20240823
  Receipt Date: 20251031
  Transmission Date: 20260118
  Serious: Yes (Hospitalization)
  Sender: ROCHE
  Company Number: CA-ROCHE-3112671

PATIENT
  Age: 71 Year
  Sex: Female

DRUGS (19)
  1. ACTEMRA ACTPEN [Suspect]
     Active Substance: TOCILIZUMAB
     Indication: Rheumatoid arthritis
     Dosage: DRUG DOSE FIRST ADMINISTERED IS 162 MG MILLIGRAM(S)
     Route: 058
     Dates: start: 20210528, end: 202205
  2. ACTEMRA ACTPEN [Suspect]
     Active Substance: TOCILIZUMAB
     Dosage: DRUG DOSE FIRST ADMINISTERED IS 162 MG MILLIGRAM(S)
     Route: 058
     Dates: start: 202205, end: 202311
  3. ACTEMRA ACTPEN [Suspect]
     Active Substance: TOCILIZUMAB
     Route: 058
     Dates: start: 2024, end: 2024
  4. ACTEMRA ACTPEN [Suspect]
     Active Substance: TOCILIZUMAB
     Route: 058
     Dates: start: 2024, end: 2025
  5. ASPIRIN [Concomitant]
     Active Substance: ASPIRIN
  6. GLYBURIDE [Concomitant]
     Active Substance: GLYBURIDE
  7. AMLODIPINE [Concomitant]
     Active Substance: AMLODIPINE BESYLATE
     Indication: Blood pressure measurement
  8. ELMIRON [Concomitant]
     Active Substance: PENTOSAN POLYSULFATE SODIUM
  9. JANUVIA [Concomitant]
     Active Substance: SITAGLIPTIN PHOSPHATE
  10. NITROFURANTOIN [Concomitant]
     Active Substance: NITROFURANTOIN
  11. INDAPAMIDE [Concomitant]
     Active Substance: INDAPAMIDE
  12. METFORMIN [Concomitant]
     Active Substance: METFORMIN HYDROCHLORIDE
  13. LOVASTATIN [Concomitant]
     Active Substance: LOVASTATIN
  14. METOPROLOL [Concomitant]
     Active Substance: METOPROLOL
  15. PANTOPRAZOLE SODIUM [Concomitant]
     Active Substance: PANTOPRAZOLE SODIUM
  16. TELMISARTAN [Concomitant]
     Active Substance: TELMISARTAN
  17. VITAMIN B12 [Concomitant]
     Active Substance: CYANOCOBALAMIN
  18. METFORMIN [Concomitant]
     Active Substance: METFORMIN HYDROCHLORIDE
  19. TYENNE [Concomitant]
     Active Substance: TOCILIZUMAB-AAZG

REACTIONS (3)
  - Off label use [Unknown]
  - Platelet count decreased [Unknown]
  - Lung disorder [Unknown]

NARRATIVE: CASE EVENT DATE: 20220401
